FAERS Safety Report 7970251-8 (Version None)
Quarter: 2011Q4

REPORT INFORMATION
  Report Type: 
  Country: None (occurrence: None)
  Receive Date: 20111212
  Receipt Date: 20111205
  Transmission Date: 20120403
  Serious: Yes (Other)
  Sender: FDA-Public Use
  Company Number: JP-JNJFOC-20111109033

PATIENT
  Age: 83 Year
  Sex: Male

DRUGS (2)
  1. PENTAZOCINE LACTATE [Interacting]
     Indication: SPINAL CORD NEOPLASM
     Route: 048
     Dates: start: 20111118, end: 20111118
  2. TRAMADOL HYDROCHLORIDE/ACETAMINOPHEN [Suspect]
     Indication: PAIN
     Route: 048
     Dates: end: 20111118

REACTIONS (3)
  - DRUG INTERACTION [None]
  - BLOOD PRESSURE INCREASED [None]
  - NAUSEA [None]
